FAERS Safety Report 19004534 (Version 16)
Quarter: 2024Q1

REPORT INFORMATION
  Report Type: Spontaneous
  Country: US (occurrence: US)
  Receive Date: 20210312
  Receipt Date: 20240206
  Transmission Date: 20240409
  Serious: Yes (Other)
  Sender: FDA-Public Use
  Company Number: US-PFIZER INC-2021213746

PATIENT
  Age: 58 Year
  Sex: Female
  Weight: 78.467 kg

DRUGS (6)
  1. TOVIAZ [Suspect]
     Active Substance: FESOTERODINE FUMARATE
     Indication: Neurogenic bladder
     Dosage: UNK
     Dates: start: 2019
  2. TOVIAZ [Suspect]
     Active Substance: FESOTERODINE FUMARATE
     Dosage: 1 DF, 1X/DAY
     Route: 048
  3. TOVIAZ [Suspect]
     Active Substance: FESOTERODINE FUMARATE
     Dosage: 8 MG, 1X/DAY (TAKES ONE A DAY AT NIGHT)
     Dates: start: 20211231
  4. TOVIAZ [Suspect]
     Active Substance: FESOTERODINE FUMARATE
     Dosage: 8 MG, ALTERNATE DAY (EVERY OTHER DAY)
  5. AMPYRA [Suspect]
     Active Substance: DALFAMPRIDINE
     Dosage: UNK
  6. MYRBETRIQ [Concomitant]
     Active Substance: MIRABEGRON
     Dosage: UNK
     Dates: start: 2019

REACTIONS (25)
  - Cataract [Unknown]
  - Multiple sclerosis relapse [Recovering/Resolving]
  - Paralysis [Unknown]
  - Weight decreased [Unknown]
  - Intentional product misuse [Unknown]
  - Reading disorder [Unknown]
  - Dysgraphia [Unknown]
  - Urinary incontinence [Unknown]
  - Gait disturbance [Recovering/Resolving]
  - Cerebral disorder [Unknown]
  - Emotional disorder [Unknown]
  - Fall [Unknown]
  - Electroencephalogram abnormal [Unknown]
  - Fatigue [Unknown]
  - Insomnia [Unknown]
  - Visual impairment [Unknown]
  - Excessive skin [Unknown]
  - Urinary incontinence [Unknown]
  - Tinnitus [Unknown]
  - Dry mouth [Unknown]
  - Vision blurred [Unknown]
  - Neurogenic bowel [Unknown]
  - Dyskinesia [Unknown]
  - Muscle spasticity [Unknown]
  - Brain fog [Unknown]
